FAERS Safety Report 6000259-3 (Version None)
Quarter: 2008Q4

REPORT INFORMATION
  Report Type: 
  Country: None (occurrence: None)
  Receive Date: 20081215
  Receipt Date: 20081205
  Transmission Date: 20090506
  Serious: Yes (Other)
  Sender: FDA-Public Use
  Company Number: NL-MERCK-0812NLD00012

PATIENT
  Sex: Female

DRUGS (1)
  1. MAXALT [Suspect]
     Route: 048
     Dates: start: 20070901

REACTIONS (1)
  - DEAFNESS UNILATERAL [None]
